FAERS Safety Report 9370716 (Version 2)
Quarter: 2013Q3

REPORT INFORMATION
  Report Type: Spontaneous
  Country: US (occurrence: US)
  Receive Date: 20130626
  Receipt Date: 20130715
  Transmission Date: 20140515
  Serious: Yes (Death)
  Sender: FDA-Public Use
  Company Number: US-GILEAD-2013-0077864

PATIENT
  Sex: Male

DRUGS (9)
  1. LETAIRIS [Suspect]
     Indication: PULMONARY HYPERTENSION
     Dosage: 5 MG, QD
     Route: 048
     Dates: start: 20130607
  2. LETAIRIS [Suspect]
     Indication: INTERSTITIAL LUNG DISEASE
  3. SILDENAFIL [Concomitant]
  4. CELEXA                             /00582602/ [Concomitant]
  5. BACTRIM DS [Concomitant]
  6. REVATIO [Concomitant]
  7. METOPROLOL [Concomitant]
  8. DIFLUCAN [Concomitant]
  9. ASA [Concomitant]

REACTIONS (3)
  - Interstitial lung disease [Fatal]
  - Pulmonary hypertension [Fatal]
  - Respiratory failure [Fatal]
